FAERS Safety Report 13988414 (Version 3)
Quarter: 2017Q4

REPORT INFORMATION
  Report Type: Spontaneous
  Country: JP (occurrence: JP)
  Receive Date: 20170919
  Receipt Date: 20171009
  Transmission Date: 20180321
  Serious: Yes (Hospitalization, Other)
  Sender: FDA-Public Use
  Company Number: JP-PFIZER INC-2017401181

PATIENT
  Age: 74 Year
  Sex: Male
  Weight: 33.3 kg

DRUGS (9)
  1. VFEND [Suspect]
     Active Substance: VORICONAZOLE
     Dosage: 100 MG, 2X/DAY
     Route: 041
     Dates: start: 20170822, end: 20170825
  2. VFEND [Suspect]
     Active Substance: VORICONAZOLE
     Indication: BRONCHOPULMONARY ASPERGILLOSIS
     Dosage: 200 MG, 2X/DAY
     Route: 041
     Dates: start: 20170821, end: 20170821
  3. LYRICA [Suspect]
     Active Substance: PREGABALIN
     Indication: PAIN
     Dosage: 150 MG, 3X/DAY
     Route: 048
     Dates: start: 20131211, end: 20170909
  4. TRYPTANOL [Concomitant]
     Active Substance: AMITRIPTYLINE
     Indication: PAIN
     Dosage: 10 MG, 1X/DAY
     Route: 048
     Dates: start: 20160428, end: 20170909
  5. AMLODIPINE [Concomitant]
     Active Substance: AMLODIPINE BESYLATE
     Indication: HYPERTENSION
     Dosage: 5 MG, 1X/DAY
     Route: 048
     Dates: start: 20170825
  6. LOXOPROFEN SODIUM [Concomitant]
     Active Substance: LOXOPROFEN SODIUM
     Indication: PAIN
     Dosage: 60 MG, 3X/DAY
     Route: 048
     Dates: start: 20131025, end: 20170909
  7. MUCOSTA [Concomitant]
     Active Substance: REBAMIPIDE
     Indication: PAIN
     Dosage: 100 MG, 3X/DAY
     Route: 048
     Dates: start: 20131025, end: 20170909
  8. VFEND [Suspect]
     Active Substance: VORICONAZOLE
     Indication: BRONCHOPULMONARY ASPERGILLOSIS
     Dosage: 100 MG, 2X/DAY
     Route: 048
     Dates: start: 20170826, end: 20170909
  9. MAGMITT [Concomitant]
     Active Substance: MAGNESIUM OXIDE
     Indication: CONSTIPATION
     Dosage: 330 MG, 3X/DAY
     Route: 048
     Dates: start: 20170412, end: 20170909

REACTIONS (8)
  - Blood urea increased [Recovering/Resolving]
  - Hallucination [Recovering/Resolving]
  - Delirium [Recovered/Resolved]
  - Pneumothorax [Recovering/Resolving]
  - Altered state of consciousness [Recovered/Resolved]
  - Hepatic function abnormal [Recovered/Resolved]
  - Dehydration [Recovering/Resolving]
  - Pneumomediastinum [Recovering/Resolving]

NARRATIVE: CASE EVENT DATE: 2017
